FAERS Safety Report 7512507-9 (Version None)
Quarter: 2011Q2

REPORT INFORMATION
  Report Type: 
  Country: None (occurrence: None)
  Receive Date: 20110520
  Receipt Date: 20110511
  Transmission Date: 20111010
  Serious: Yes (Other)
  Sender: FDA-Public Use
  Company Number: 2011002244

PATIENT
  Age: 54 Year
  Sex: Female

DRUGS (1)
  1. TARCEVA [Suspect]
     Indication: LUNG NEOPLASM MALIGNANT
     Dosage: 150 MG, QD,ORAL
     Route: 048
     Dates: start: 20110205, end: 20110505

REACTIONS (3)
  - HALLUCINATION [None]
  - DEPRESSION [None]
  - SUICIDAL IDEATION [None]
